FAERS Safety Report 6400189-9 (Version None)
Quarter: 2009Q4

REPORT INFORMATION
  Report Type: 
  Country: None (occurrence: None)
  Receive Date: 20091007
  Receipt Date: 20091007
  Transmission Date: 20100525
  Serious: Yes (Hospitalization)
  Sender: FDA-Public Use
  Company Number: None

PATIENT
  Age: 78 Year
  Sex: Female
  Weight: 73 kg

DRUGS (11)
  1. CELECOXIB [Suspect]
     Indication: BACK PAIN
     Dosage: 200MG DAILY ORAL
     Route: 048
     Dates: start: 20090624
  2. ASPIRIN [Concomitant]
  3. POTASSIUM CHLORIDE [Concomitant]
  4. HYDROCHLOROTHIAZIDE [Concomitant]
  5. SPIRONOLACTONE [Concomitant]
  6. METFORMIN HYDROCHLORIDE [Concomitant]
  7. GLIPIZIDE [Concomitant]
  8. M.V.I. [Concomitant]
  9. AMRIX [Concomitant]
  10. AZITHROMYCIN [Concomitant]
  11. PROMETH [Concomitant]

REACTIONS (2)
  - HYPERSENSITIVITY [None]
  - RENAL FAILURE ACUTE [None]
